FAERS Safety Report 24299344 (Version 2)
Quarter: 2024Q4

REPORT INFORMATION
  Report Type: Spontaneous
  Country: CL (occurrence: CL)
  Receive Date: 20240909
  Receipt Date: 20241016
  Transmission Date: 20250114
  Serious: No
  Sender: PFIZER
  Company Number: CL-PFIZER INC-PV202400115963

PATIENT
  Age: 13 Year
  Sex: Male

DRUGS (1)
  1. GENOTROPIN [Suspect]
     Active Substance: SOMATROPIN

REACTIONS (3)
  - Injection site pain [Unknown]
  - Anxiety [Unknown]
  - Fear of injection [Unknown]
